FAERS Safety Report 17367836 (Version 4)
Quarter: 2020Q4

REPORT INFORMATION
  Report Type: Spontaneous
  Country: US (occurrence: US)
  Receive Date: 20200204
  Receipt Date: 20201207
  Transmission Date: 20210113
  Serious: Yes (Other)
  Sender: FDA-Public Use
  Company Number: US-PFIZER INC-2020043314

PATIENT
  Age: 56 Year
  Sex: Male

DRUGS (3)
  1. XELJANZ [Suspect]
     Active Substance: TOFACITINIB CITRATE
     Indication: COLITIS ULCERATIVE
     Dosage: 10 MG, 2X/DAY
     Route: 048
     Dates: start: 201906, end: 2019
  2. XELJANZ [Suspect]
     Active Substance: TOFACITINIB CITRATE
     Dosage: 10 MG, 2X/DAY
     Route: 048
     Dates: start: 201907
  3. XELJANZ [Suspect]
     Active Substance: TOFACITINIB CITRATE
     Dosage: 15 MG, DAILY (10 MG MORNING AND HALF PILL- 5 MG AT NIGHT, CUTS PILL IN HALF)
     Route: 048

REACTIONS (10)
  - Meniscus injury [Unknown]
  - Off label use [Unknown]
  - Frequent bowel movements [Unknown]
  - Weight decreased [Unknown]
  - Condition aggravated [Unknown]
  - Gait disturbance [Unknown]
  - Blood pressure decreased [Unknown]
  - Product use issue [Unknown]
  - Sleep disorder [Unknown]
  - Colitis ulcerative [Unknown]
